FAERS Safety Report 24769038 (Version 1)
Quarter: 2024Q4

REPORT INFORMATION
  Report Type: Other
  Country: FR (occurrence: FR)
  Receive Date: 20241224
  Receipt Date: 20241224
  Transmission Date: 20250115
  Serious: Yes (Other)
  Sender: ZYDUS PHARM
  Company Number: None

PATIENT

DRUGS (2)
  1. GABAPENTIN [Suspect]
     Active Substance: GABAPENTIN
     Indication: Endometriosis
     Dosage: 1800 MILLIGRAM, QD
     Route: 064
     Dates: start: 20231206, end: 20240807
  2. AMITRIPTYLINE HYDROCHLORIDE [Suspect]
     Active Substance: AMITRIPTYLINE HYDROCHLORIDE
     Indication: Endometriosis
     Dosage: 50 DROP (1/12 MILLILITRE), QD
     Route: 064
     Dates: start: 20231206, end: 20240410

REACTIONS (3)
  - Foetal growth restriction [Recovered/Resolved]
  - Term birth [Recovered/Resolved]
  - Foetal exposure during pregnancy [Recovered/Resolved]

NARRATIVE: CASE EVENT DATE: 20231206
